FAERS Safety Report 14255504 (Version 1)
Quarter: 2017Q4

REPORT INFORMATION
  Report Type: Report from Study
  Country: US (occurrence: AR)
  Receive Date: 20171206
  Receipt Date: 20171206
  Transmission Date: 20180321
  Serious: Yes (Death, Hospitalization, Other)
  Sender: FDA-Public Use
  Company Number: US-SUNOVION-2017SUN005149

PATIENT
  Age: 78 Year
  Sex: Male

DRUGS (3)
  1. SPIRIVA [Concomitant]
     Active Substance: TIOTROPIUM BROMIDE MONOHYDRATE
  2. CORTICOSTEROIDS [Concomitant]
     Active Substance: CORTICOSTEROID NOS
  3. INDACATEROL [Suspect]
     Active Substance: INDACATEROL
     Indication: CHRONIC OBSTRUCTIVE PULMONARY DISEASE
     Dosage: UNK UNK, QD (MORE THAN 5 YEARS AGO)
     Route: 065
     Dates: end: 20171009

REACTIONS (12)
  - Respiratory disorder [Unknown]
  - Product use issue [Unknown]
  - Cardiac disorder [Unknown]
  - Myocardial infarction [Fatal]
  - General physical health deterioration [Fatal]
  - Chronic obstructive pulmonary disease [Unknown]
  - Dyspnoea [Unknown]
  - Hypoxia [Unknown]
  - Agitation [Unknown]
  - Oral pruritus [Unknown]
  - Cardiac function test abnormal [Fatal]
  - Cough [Unknown]

NARRATIVE: CASE EVENT DATE: 20171009
